FAERS Safety Report 9753783 (Version 2)
Quarter: 2013Q4

REPORT INFORMATION
  Report Type: Spontaneous
  Country: US (occurrence: US)
  Receive Date: 20131213
  Receipt Date: 20131213
  Transmission Date: 20140711
  Serious: No
  Sender: FDA-Public Use
  Company Number: US-GILEAD-2010-0026556

PATIENT
  Sex: Female

DRUGS (11)
  1. LETAIRIS [Suspect]
     Indication: PULMONARY ARTERIAL HYPERTENSION
  2. LIVER CLEANSE [Concomitant]
  3. COLON CLEANSE [Concomitant]
  4. KLOR-CON [Concomitant]
  5. REVATIO [Concomitant]
  6. ASPIRIN [Concomitant]
  7. ALTRAZOLAM [Concomitant]
  8. MULTIVITAMIN [Concomitant]
  9. FISH OIL [Concomitant]
  10. VITAMIN E [Concomitant]
  11. VITAMIN D [Concomitant]

REACTIONS (1)
  - Liver function test abnormal [Unknown]
